FAERS Safety Report 21737913 (Version 5)
Quarter: 2023Q1

REPORT INFORMATION
  Report Type: Report from Study
  Country: US (occurrence: US)
  Receive Date: 20221216
  Receipt Date: 20230323
  Transmission Date: 20230417
  Serious: No
  Sender: FDA-Public Use
  Company Number: US-002147023-NVSC2022US290299

PATIENT
  Sex: Male

DRUGS (1)
  1. COSENTYX [Suspect]
     Active Substance: SECUKINUMAB
     Indication: Psoriasis
     Dosage: 300 MG (WITH LOADING DOSES)
     Route: 065

REACTIONS (3)
  - Arthritis [Unknown]
  - Erythema [Unknown]
  - Skin exfoliation [Recovering/Resolving]
